FAERS Safety Report 18539134 (Version 1)
Quarter: 2020Q4

REPORT INFORMATION
  Report Type: Spontaneous
  Country: IN (occurrence: IN)
  Receive Date: 20201124
  Receipt Date: 20201124
  Transmission Date: 20210114
  Serious: Yes (Hospitalization)
  Sender: FDA-Public Use
  Company Number: IN-NOVOPROD-767910

PATIENT
  Age: 55 Year
  Sex: Female

DRUGS (1)
  1. HUMAN MIXTARD 40 [Suspect]
     Active Substance: INSULIN HUMAN
     Indication: BLOOD GLUCOSE ABNORMAL
     Dosage: TWICE A DAY
     Route: 065

REACTIONS (11)
  - Asthenia [Recovering/Resolving]
  - Off label use [Unknown]
  - Injection site irritation [Recovering/Resolving]
  - Injection site vesicles [Recovering/Resolving]
  - Injection site infection [Recovering/Resolving]
  - Skin burning sensation [Recovering/Resolving]
  - Blood glucose abnormal [Recovering/Resolving]
  - Hypersensitivity [Recovering/Resolving]
  - Product colour issue [Unknown]
  - Injection site pain [Recovering/Resolving]
  - Peripheral swelling [Recovering/Resolving]

NARRATIVE: CASE EVENT DATE: 202010
